FAERS Safety Report 15758307 (Version 1)
Quarter: 2018Q4

REPORT INFORMATION
  Report Type: Spontaneous
  Country: US (occurrence: US)
  Receive Date: 20181225
  Receipt Date: 20181225
  Transmission Date: 20190205
  Serious: No
  Sender: FDA-Public Use
  Company Number: US-BAUSCH-BL-2018-012855

PATIENT
  Age: 68 Year
  Sex: Female
  Weight: 79.45 kg

DRUGS (2)
  1. NEXIUM [Concomitant]
     Active Substance: ESOMEPRAZOLE MAGNESIUM
     Indication: PRODUCT USED FOR UNKNOWN INDICATION
     Route: 048
  2. ALAWAY [Suspect]
     Active Substance: KETOTIFEN FUMARATE
     Indication: EYE PRURITUS
     Route: 047
     Dates: start: 20180426, end: 20180426

REACTIONS (2)
  - Ocular hyperaemia [Not Recovered/Not Resolved]
  - Iris disorder [Not Recovered/Not Resolved]

NARRATIVE: CASE EVENT DATE: 20180426
